FAERS Safety Report 9546990 (Version 1)
Quarter: 2013Q2

REPORT INFORMATION
  Report Type: Spontaneous
  Country: US (occurrence: None)
  Receive Date: 20130606
  Receipt Date: 20130606
  Transmission Date: 20140414
  Serious: No
  Sender: FDA-Public Use
  Company Number: 163-POMAL-13050589

PATIENT
  Age: 78 Year
  Sex: Female
  Weight: 63.01 kg

DRUGS (3)
  1. POMALYST [Suspect]
     Indication: PLASMA CELL MYELOMA
     Route: 048
     Dates: start: 20130413
  2. HYDROCODONE/ACETAMINOPHEN (REMEDEINE) [Concomitant]
  3. DEXAMETHASONE [Concomitant]

REACTIONS (1)
  - Dysphagia [None]
